FAERS Safety Report 18061850 (Version 1)
Quarter: 2020Q3

REPORT INFORMATION
  Report Type: Spontaneous
  Country: AT (occurrence: AT)
  Receive Date: 20200723
  Receipt Date: 20200723
  Transmission Date: 20201103
  Serious: Yes (Other)
  Sender: FDA-Public Use
  Company Number: NVSC2020AT203240

PATIENT
  Sex: Male
  Weight: 73 kg

DRUGS (2)
  1. TAMSULOSIN ? 1 A PHARMA 0,4 MG RETARDTABLETTEN [Suspect]
     Active Substance: TAMSULOSIN HYDROCHLORIDE
     Indication: PROSTATOMEGALY
     Dosage: 0.4 MG, QD
     Route: 065
     Dates: start: 20200606
  2. TAMSULOSIN ? 1 A PHARMA 0,4 MG RETARDTABLETTEN [Suspect]
     Active Substance: TAMSULOSIN HYDROCHLORIDE
     Indication: BLADDER DISORDER

REACTIONS (4)
  - Loss of consciousness [Recovering/Resolving]
  - Dyspnoea [Not Recovered/Not Resolved]
  - Hypertonic bladder [Not Recovered/Not Resolved]
  - Micturition urgency [Not Recovered/Not Resolved]

NARRATIVE: CASE EVENT DATE: 20200606
